FAERS Safety Report 4607508-4 (Version None)
Quarter: 2005Q1

REPORT INFORMATION
  Report Type: 
  Country: None (occurrence: None)
  Receive Date: 20050309
  Receipt Date: 20050221
  Transmission Date: 20050727
  Serious: Yes (Death)
  Sender: FDA-Public Use
  Company Number: 10354

PATIENT
  Age: 75 Year
  Sex: Male

DRUGS (7)
  1. METHOTREXATE [Suspect]
     Dosage: 10 MG WEEKLY
     Route: 048
     Dates: end: 20050104
  2. OMEPRAZOLE [Concomitant]
  3. DICLOFENAC [Concomitant]
  4. FOLIC ACID [Concomitant]
  5. PREDNISOLONE [Concomitant]
  6. ATORVASTATIN CALCIUM [Concomitant]
  7. PERINDOPRIL [Concomitant]

REACTIONS (2)
  - ALVEOLITIS [None]
  - RESPIRATORY FAILURE [None]
